FAERS Safety Report 6385780-0 (Version None)
Quarter: 2009Q4

REPORT INFORMATION
  Report Type: 
  Country: None (occurrence: None)
  Receive Date: 20091002
  Receipt Date: 20081006
  Transmission Date: 20100525
  Serious: No
  Sender: FDA-Public Use
  Company Number: US-ASTRAZENECA-2008UW21790

PATIENT
  Age: 54 Year
  Sex: Female

DRUGS (2)
  1. ARIMIDEX [Suspect]
     Indication: BREAST CANCER STAGE IV
     Route: 048
  2. LAMICTAL [Concomitant]

REACTIONS (7)
  - BACK PAIN [None]
  - CONSTIPATION [None]
  - DISEASE RECURRENCE [None]
  - DRUG INEFFECTIVE [None]
  - HEPATIC NEOPLASM [None]
  - NEOPLASM [None]
  - SCOLIOSIS [None]
